FAERS Safety Report 4302592-X (Version None)
Quarter: 2004Q1

REPORT INFORMATION
  Report Type: 
  Country: None (occurrence: None)
  Receive Date: 20040224
  Receipt Date: 20040216
  Transmission Date: 20041129
  Serious: Yes (Hospitalization)
  Sender: FDA-Public Use
  Company Number: DE-BRISTOL-MYERS SQUIBB COMPANY-12511481

PATIENT
  Sex: Male

DRUGS (3)
  1. GLUCOPHAGE [Suspect]
     Indication: DIABETES MELLITUS
  2. ARELIX [Suspect]
     Indication: HYPERTENSION
  3. NIFEDIPINE [Suspect]
     Indication: HYPERTENSION

REACTIONS (2)
  - HAEMORRHAGE [None]
  - THROMBOCYTOPENIA [None]
